FAERS Safety Report 10157352 (Version 2)
Quarter: 2014Q2

REPORT INFORMATION
  Report Type: Report from Study
  Country: FR (occurrence: FR)
  Receive Date: 20140507
  Receipt Date: 20140522
  Transmission Date: 20141212
  Serious: Yes (Hospitalization, Other)
  Sender: FDA-Public Use
  Company Number: FR-ASTRAZENECA-2014SE29551

PATIENT
  Age: 25640 Day
  Sex: Male

DRUGS (7)
  1. AZD6140 [Suspect]
     Indication: ISCHAEMIC HEART DISEASE PROPHYLAXIS
     Dosage: 180 MG LOADING DOSE ON DAY 1 FOLLOWED BY 90 MG TWICE DAILY
     Route: 048
     Dates: start: 20140428
  2. BRICANYL [Concomitant]
     Dates: start: 20140428, end: 20140429
  3. POLARAMINE [Concomitant]
     Dates: start: 20140428, end: 20140428
  4. SOLUMEDROL [Concomitant]
     Dates: start: 20140428
  5. ATROVENT [Concomitant]
     Dates: start: 20140428
  6. PULMICORT [Concomitant]
     Dates: start: 20140428
  7. SALBUTAMOL [Concomitant]

REACTIONS (1)
  - Acute respiratory failure [Recovered/Resolved]
